FAERS Safety Report 9918693 (Version 2)
Quarter: 2014Q3

REPORT INFORMATION
  Report Type: Spontaneous
  Country: IN (occurrence: IN)
  Receive Date: 20140224
  Receipt Date: 20140724
  Transmission Date: 20150326
  Serious: Yes (Death, Other)
  Sender: FDA-Public Use
  Company Number: IN-RANBAXY-2014R1-78114

PATIENT
  Age: 32 Year
  Sex: Female

DRUGS (1)
  1. RANTAC [Suspect]
     Active Substance: RANITIDINE HYDROCHLORIDE
     Indication: PRODUCT USED FOR UNKNOWN INDICATION
     Dosage: UNK
     Route: 042

REACTIONS (9)
  - Coma [Unknown]
  - Supraventricular tachycardia [None]
  - Dizziness [Unknown]
  - Death [Fatal]
  - Dyspnoea [Unknown]
  - Cardiovascular insufficiency [None]
  - Cardio-respiratory arrest [Unknown]
  - Ventricular tachycardia [Unknown]
  - Dyspnoea [None]
